FAERS Safety Report 15421011 (Version 2)
Quarter: 2018Q3

REPORT INFORMATION
  Report Type: Spontaneous
  Country: US (occurrence: US)
  Receive Date: 20180924
  Receipt Date: 20180926
  Transmission Date: 20181010
  Serious: Yes (Life-Threatening, Hospitalization, Other)
  Sender: FDA-Public Use
  Company Number: US-SA-2018SA263914

PATIENT
  Age: 71 Year
  Sex: Male

DRUGS (5)
  1. PRALUENT [Suspect]
     Active Substance: ALIROCUMAB
     Indication: BLOOD CHOLESTEROL
     Dosage: 75 MG, QOW
     Route: 058
     Dates: start: 20180822, end: 20180914
  2. ALIROCUMAB PREFILLED PEN [Suspect]
     Active Substance: ALIROCUMAB
     Indication: HYPERCHOLESTEROLAEMIA
  3. ATORVASTATIN [Concomitant]
     Active Substance: ATORVASTATIN
  4. ALIROCUMAB PREFILLED PEN [Suspect]
     Active Substance: ALIROCUMAB
     Indication: BLOOD CHOLESTEROL
     Dosage: 75 MG, QOW
     Route: 058
     Dates: start: 20180822, end: 20180914
  5. PRALUENT [Suspect]
     Active Substance: ALIROCUMAB
     Indication: HYPERCHOLESTEROLAEMIA

REACTIONS (4)
  - Renal failure [Recovering/Resolving]
  - Condition aggravated [Unknown]
  - Diarrhoea [Recovering/Resolving]
  - Vomiting [Recovering/Resolving]
